FAERS Safety Report 7787047-2 (Version None)
Quarter: 2011Q3

REPORT INFORMATION
  Report Type: 
  Country: None (occurrence: None)
  Receive Date: 20110929
  Receipt Date: 20110926
  Transmission Date: 20111222
  Serious: Yes (Other)
  Sender: FDA-Public Use
  Company Number: CHPA2011US13091

PATIENT
  Age: 66 Year
  Sex: Male

DRUGS (1)
  1. PREVACID 24 HR [Suspect]
     Indication: DYSPEPSIA
     Dosage: 15 MG, QD
     Route: 048
     Dates: start: 20110101

REACTIONS (2)
  - CARDIAC FLUTTER [None]
  - HEART RATE IRREGULAR [None]
